FAERS Safety Report 8579033-X (Version None)
Quarter: 2012Q3

REPORT INFORMATION
  Report Type: 
  Country: None (occurrence: None)
  Receive Date: 20120808
  Receipt Date: 20120803
  Transmission Date: 20120928
  Serious: Yes (Other)
  Sender: FDA-Public Use
  Company Number: US-ROCHE-1065045

PATIENT
  Sex: Female
  Weight: 81.72 kg

DRUGS (1)
  1. ACCUTANE [Suspect]
     Indication: ACNE CYSTIC
     Dosage: 40 MG DAILY ALTERNATING WITH 80 MG DAILY
     Route: 065
     Dates: start: 19831204, end: 19840330

REACTIONS (7)
  - DEPRESSION [None]
  - IRRITABLE BOWEL SYNDROME [None]
  - CROHN'S DISEASE [None]
  - COLON CANCER [None]
  - INTESTINAL OBSTRUCTION [None]
  - BLOOD TRIGLYCERIDES INCREASED [None]
  - INFLAMMATORY BOWEL DISEASE [None]
